FAERS Safety Report 8866562 (Version 1)
Quarter: 2012Q4

REPORT INFORMATION
  Report Type: 
  Country: US (occurrence: US)
  Receive Date: 20121025
  Receipt Date: 20121025
  Transmission Date: 20130627
  Serious: No
  Sender: FDA-Public Use
  Company Number: US-AMGEN-USASP2012012894

PATIENT
  Age: 51 Year
  Sex: Male
  Weight: 82.99 kg

DRUGS (5)
  1. ENBREL [Suspect]
     Indication: PRODUCT USED FOR UNKNOWN INDICATION
     Dosage: 50 mg, qwk
     Route: 058
  2. NAPROXEN [Concomitant]
     Dosage: UNK
  3. RANITIDINE [Concomitant]
     Route: 048
  4. VITAMIN D3 [Concomitant]
     Dosage: UNK
  5. FOLIC ACID [Concomitant]

REACTIONS (3)
  - Lacrimation increased [Unknown]
  - Eye pain [Unknown]
  - Headache [Unknown]
